FAERS Safety Report 9438936 (Version 1)
Quarter: 2013Q3

REPORT INFORMATION
  Report Type: Spontaneous
  Country: US (occurrence: US)
  Receive Date: 20130802
  Receipt Date: 20130802
  Transmission Date: 20140515
  Serious: Yes (Death, Hospitalization)
  Sender: FDA-Public Use
  Company Number: US-NOVEN-13US007353

PATIENT
  Age: 81 Year
  Sex: Female

DRUGS (3)
  1. FENTANYL [Suspect]
     Indication: BACK PAIN
     Dosage: 50 MCG/HR
     Route: 062
     Dates: start: 201303, end: 20130717
  2. FENTANYL [Suspect]
     Indication: PAIN IN EXTREMITY
  3. LIDODERM [Concomitant]
     Indication: PRODUCT USED FOR UNKNOWN INDICATION
     Dosage: UNK
     Route: 062

REACTIONS (2)
  - Death [Fatal]
  - Clostridium difficile colitis [Unknown]
